FAERS Safety Report 25114157 (Version 2)
Quarter: 2025Q2

REPORT INFORMATION
  Report Type: Report from Study
  Country: IT (occurrence: IT)
  Receive Date: 20250324
  Receipt Date: 20250507
  Transmission Date: 20250717
  Serious: Yes (Hospitalization, Other)
  Sender: NOVARTIS
  Company Number: IT-002147023-NVSC2025IT047482

PATIENT
  Age: 14 Year
  Sex: Male
  Weight: 29 kg

DRUGS (21)
  1. MEKINIST [Suspect]
     Active Substance: TRAMETINIB DIMETHYL SULFOXIDE
     Indication: Glioma
     Dosage: 0.5 MG, QD
     Route: 048
     Dates: start: 20240202
  2. MEKINIST [Suspect]
     Active Substance: TRAMETINIB DIMETHYL SULFOXIDE
     Dosage: 0.375 MG, QD (EQUAL TO 0.018 MG/KG/DAY)
     Route: 048
     Dates: start: 20240820
  3. MEKINIST [Suspect]
     Active Substance: TRAMETINIB DIMETHYL SULFOXIDE
     Dosage: 0.5 MG, QD (EQUAL TO 0.025 MG/KG/DAY)
     Route: 048
     Dates: start: 20240917
  4. MEKINIST [Suspect]
     Active Substance: TRAMETINIB DIMETHYL SULFOXIDE
     Dosage: 15 ML, QD (EQUAL TO 0.75 MG/DAY)
     Route: 048
     Dates: start: 20250226, end: 20250318
  5. LEVETIRACETAM [Concomitant]
     Active Substance: LEVETIRACETAM
     Indication: Product used for unknown indication
     Route: 065
  6. LEVETIRACETAM [Concomitant]
     Active Substance: LEVETIRACETAM
     Dosage: 7.5 ML, QD (SYRUP) (2.5 ML AT 10AM AND 5 ML AT 10PM)
     Route: 065
  7. LANSOPRAZOLE [Concomitant]
     Active Substance: LANSOPRAZOLE
     Indication: Product used for unknown indication
     Dosage: 30 MG, QD (AT 8 HR A.M.)
     Route: 065
  8. AMOXICILLIN\CLAVULANIC ACID [Concomitant]
     Active Substance: AMOXICILLIN\CLAVULANIC ACID
     Indication: Product used for unknown indication
     Dosage: 1 G, QD (IN THE EVENING)
     Route: 065
  9. CHOLECALCIFEROL [Concomitant]
     Active Substance: CHOLECALCIFEROL
     Indication: Product used for unknown indication
     Dosage: 1000 UNIT, QD (DROPS)
     Route: 065
  10. CHOLECALCIFEROL [Concomitant]
     Active Substance: CHOLECALCIFEROL
     Dosage: 4 DRP, QD (10000 IU/ML)
     Route: 065
  11. TRAMADOL [Concomitant]
     Active Substance: TRAMADOL
     Indication: Product used for unknown indication
     Dosage: 40 MG, QD
     Route: 065
     Dates: start: 20250212
  12. Prontosan [Concomitant]
     Indication: Product used for unknown indication
     Route: 065
  13. LACTATED RINGERS SOLUTION [Concomitant]
     Active Substance: CALCIUM CHLORIDE\POTASSIUM CHLORIDE\SODIUM CHLORIDE\SODIUM LACTATE
     Indication: Product used for unknown indication
     Route: 042
  14. FENTANYL [Concomitant]
     Active Substance: FENTANYL
     Indication: Sedative therapy
     Route: 065
  15. PROPOFOL [Concomitant]
     Active Substance: PROPOFOL
     Indication: Sedative therapy
     Route: 065
  16. VINBLASTINE [Concomitant]
     Active Substance: VINBLASTINE
     Indication: Product used for unknown indication
     Dosage: UNK, QW (CONTINUATION OF CHEMOTHERAPY)
     Route: 065
     Dates: start: 20231017
  17. ESOMEPRAZOLE [Concomitant]
     Active Substance: ESOMEPRAZOLE
     Indication: Product used for unknown indication
     Route: 065
  18. AUGMENTIN [Concomitant]
     Active Substance: AMOXICILLIN\CLAVULANATE POTASSIUM
     Indication: Product used for unknown indication
     Dosage: 1 DOSAGE FORM, QD (N TABLETS OR SACHETS 1 GR, TABLET PER SACHET EVERY EVENING)
     Route: 065
  19. ACYCLOVIR [Concomitant]
     Active Substance: ACYCLOVIR
     Indication: Product used for unknown indication
     Route: 065
     Dates: start: 20250212
  20. MUPIROCIN CALCIUM [Concomitant]
     Active Substance: MUPIROCIN CALCIUM
     Indication: Product used for unknown indication
     Route: 065
     Dates: start: 20250212
  21. BACTRIM [Concomitant]
     Active Substance: SULFAMETHOXAZOLE\TRIMETHOPRIM
     Indication: Prophylaxis
     Route: 065

REACTIONS (32)
  - Skin toxicity [Not Recovered/Not Resolved]
  - Decubitus ulcer [Unknown]
  - Ulcer haemorrhage [Unknown]
  - Purulent discharge [Unknown]
  - Condition aggravated [Unknown]
  - Sepsis [Unknown]
  - Hypokalaemia [Unknown]
  - Enterovirus infection [Unknown]
  - Hypoalbuminaemia [Unknown]
  - Anaemia [Unknown]
  - Oedema [Recovering/Resolving]
  - Cachexia [Unknown]
  - Urethral haemorrhage [Unknown]
  - Paronychia [Unknown]
  - Lip dry [Unknown]
  - Mucosal inflammation [Unknown]
  - Gingival bleeding [Unknown]
  - Oedema peripheral [Unknown]
  - Pyrexia [Recovered/Resolved]
  - Inflammatory marker increased [Unknown]
  - Nitrite urine [Unknown]
  - Diarrhoea [Unknown]
  - Pyrexia [Unknown]
  - Vomiting [Unknown]
  - Urine output decreased [Recovered/Resolved]
  - Hyperfibrinogenaemia [Unknown]
  - Hyponatraemia [Unknown]
  - Hyperaemia [Unknown]
  - Pain [Unknown]
  - Rash pustular [Recovered/Resolved]
  - Pyrexia [Recovered/Resolved]
  - Urine abnormality [Unknown]

NARRATIVE: CASE EVENT DATE: 20241101
